FAERS Safety Report 5121318-3 (Version None)
Quarter: 2006Q4

REPORT INFORMATION
  Report Type: 
  Country: None (occurrence: None)
  Receive Date: 20061002
  Receipt Date: 20060920
  Transmission Date: 20070319
  Serious: Yes (Death, Other)
  Sender: FDA-Public Use
  Company Number: 2006075540

PATIENT
  Age: 70 Year
  Sex: Male

DRUGS (9)
  1. LYRICA [Suspect]
     Indication: NEUROPATHY PERIPHERAL
     Dosage: 225 MG (2 IN 1 D), ORAL
     Route: 048
     Dates: start: 20060213
  2. MOVICOL (MACROGOL, POTASSIUM CHLORIDE, SODIUM BICARBONATE, SODIUM CHLO [Concomitant]
  3. GLICLAZIDE (GLICLAZIDE) [Concomitant]
  4. OMEPRAZOLE [Concomitant]
  5. CLOPIDOGREL [Concomitant]
  6. QUININE SULFATE [Concomitant]
  7. DOXAZOSIN (DOXAZOSIN) [Concomitant]
  8. CITALOPRAM HYDROBROMIDE [Concomitant]
  9. ENOXAPARIN SODIUM [Concomitant]

REACTIONS (3)
  - HAEMOGLOBIN DECREASED [None]
  - NEUTROPENIA [None]
  - WHITE BLOOD CELL COUNT DECREASED [None]
